FAERS Safety Report 14589507 (Version 1)
Quarter: 2018Q1

REPORT INFORMATION
  Report Type: Spontaneous
  Country: FR (occurrence: FR)
  Receive Date: 20180302
  Receipt Date: 20180302
  Transmission Date: 20180509
  Serious: Yes (Other)
  Sender: FDA-Public Use
  Company Number: FR-MERCK KGAA-2042843

PATIENT
  Age: 63 Year
  Sex: Female

DRUGS (1)
  1. NOVOTHYROX [Suspect]
     Active Substance: LEVOTHYROXINE SODIUM
     Indication: POST PROCEDURAL HYPOTHYROIDISM
     Dates: start: 201704

REACTIONS (11)
  - Vertigo [None]
  - Blood calcium decreased [None]
  - Hypersensitivity [None]
  - Muscle spasms [None]
  - Acne [None]
  - Headache [None]
  - Irritability [None]
  - Palpitations [None]
  - Rosacea [None]
  - Hyperthyroidism [Not Recovered/Not Resolved]
  - Erythema [None]

NARRATIVE: CASE EVENT DATE: 201704
